FAERS Safety Report 7780846-2 (Version None)
Quarter: 2011Q3

REPORT INFORMATION
  Report Type: 
  Country: None (occurrence: None)
  Receive Date: 20110927
  Receipt Date: 20110921
  Transmission Date: 20111222
  Serious: No
  Sender: FDA-Public Use
  Company Number: US-PFIZER INC-2011224789

PATIENT
  Sex: Female

DRUGS (5)
  1. HYZAAR [Concomitant]
     Dosage: UNK
  2. SYNTHROID [Concomitant]
     Dosage: UNK
  3. NOVOLOG [Concomitant]
     Dosage: UNK
  4. INSULIN DETEMIR [Concomitant]
     Dosage: UNK
  5. NEURONTIN [Suspect]
     Dosage: THREE TIMES A DAY BY TAKING 10ML IN THE MORNING, 10ML IN THE EVENING AND 20ML AT BED TIME
     Route: 048
     Dates: start: 20100701

REACTIONS (2)
  - DYSGEUSIA [None]
  - FEELING ABNORMAL [None]
